FAERS Safety Report 5381172-1 (Version None)
Quarter: 2007Q3

REPORT INFORMATION
  Report Type: 
  Country: None (occurrence: None)
  Receive Date: 20070706
  Receipt Date: 20070625
  Transmission Date: 20080115
  Serious: Yes (Hospitalization, Other)
  Sender: FDA-Public Use
  Company Number: IT-PFIZER INC-2007052221

PATIENT
  Age: 57 Year
  Sex: Male

DRUGS (1)
  1. SILDENAFIL CITRATE [Suspect]
     Indication: ERECTILE DYSFUNCTION

REACTIONS (9)
  - DEEP VEIN THROMBOSIS [None]
  - DIARRHOEA [None]
  - GASTROENTERITIS [None]
  - HEADACHE [None]
  - INTRACRANIAL VENOUS SINUS THROMBOSIS [None]
  - THROMBOSIS [None]
  - VENOUS THROMBOSIS [None]
  - VISION BLURRED [None]
  - VOMITING [None]
